FAERS Safety Report 5735714-4 (Version None)
Quarter: 2008Q2

REPORT INFORMATION
  Report Type: 
  Country: None (occurrence: None)
  Receive Date: 20080513
  Receipt Date: 20080501
  Transmission Date: 20081010
  Serious: Yes (Death, Other)
  Sender: FDA-Public Use
  Company Number: GB-RANBAXY-2008RR-14910

PATIENT

DRUGS (7)
  1. GABAPENTIN [Suspect]
     Indication: PAIN
     Dosage: 600 MG, TID
  2. KETAMINE HYDROCHLORIDE [Suspect]
  3. LYRICA [Suspect]
     Indication: PAIN
     Dosage: 50 MG, TID
  4. LYRICA [Suspect]
     Dosage: 50 MG, TID
  5. DEXAMETHASONE [Concomitant]
     Dosage: 100 MG, UNK
  6. MIDAZOLAM HCL [Concomitant]
  7. OXYCODONE HCL [Concomitant]
     Dosage: 10 MG, UNK

REACTIONS (3)
  - CENTRAL NERVOUS SYSTEM LYMPHOMA [None]
  - DRUG INEFFECTIVE [None]
  - POLYNEUROPATHY IN MALIGNANT DISEASE [None]
